FAERS Safety Report 14111248 (Version 1)
Quarter: 2017Q4

REPORT INFORMATION
  Report Type: Spontaneous
  Country: IT (occurrence: IT)
  Receive Date: 20171020
  Receipt Date: 20171020
  Transmission Date: 20180321
  Serious: Yes (Other)
  Sender: FDA-Public Use
  Company Number: IT-MYLANLABS-2017M1065183

PATIENT
  Age: 72 Year
  Sex: Male

DRUGS (3)
  1. ERLOTINIB [Suspect]
     Active Substance: ERLOTINIB
     Indication: LUNG SQUAMOUS CELL CARCINOMA STAGE IV
     Dosage: 150MG/DAY
     Route: 065
     Dates: start: 200902
  2. PACLITAXEL. [Suspect]
     Active Substance: PACLITAXEL
     Indication: LUNG SQUAMOUS CELL CARCINOMA STAGE IV
     Dosage: 175MG/M2 ON DAY 1 OF 21 DAY CYCLE
     Route: 065
     Dates: start: 200810
  3. CARBOPLATIN. [Suspect]
     Active Substance: CARBOPLATIN
     Indication: LUNG SQUAMOUS CELL CARCINOMA STAGE IV
     Dosage: AUC OF 5; ADMINISTERED ON DAY 1 OF 21 DAY CYCLE
     Route: 065
     Dates: start: 200810

REACTIONS (4)
  - Leukopenia [Unknown]
  - Asthenia [Unknown]
  - Rash [Unknown]
  - Neuropathy peripheral [Unknown]

NARRATIVE: CASE EVENT DATE: 2008
